FAERS Safety Report 16240651 (Version 2)
Quarter: 2019Q2

REPORT INFORMATION
  Report Type: Spontaneous
  Country: US (occurrence: US)
  Receive Date: 20190425
  Receipt Date: 20190502
  Transmission Date: 20190711
  Serious: No
  Sender: FDA-Public Use
  Company Number: US-009507513-1904USA009937

PATIENT
  Age: 37 Year
  Sex: Female

DRUGS (2)
  1. DULERA [Suspect]
     Active Substance: FORMOTEROL FUMARATE DIHYDRATE\MOMETASONE FUROATE
     Dosage: 2 INHALATIONS/ TWICE DAILY
     Route: 055
     Dates: start: 20190419
  2. DULERA [Suspect]
     Active Substance: FORMOTEROL FUMARATE DIHYDRATE\MOMETASONE FUROATE
     Indication: RESPIRATORY DISORDER
     Dosage: 2 INHALATIONS/ TWICE DAILY
     Route: 055
     Dates: start: 201806, end: 20190415

REACTIONS (5)
  - Product quality issue [Not Recovered/Not Resolved]
  - Poor quality device used [Unknown]
  - Drug dose omission by device [Unknown]
  - Dyspnoea [Recovered/Resolved]
  - Product use in unapproved indication [Unknown]

NARRATIVE: CASE EVENT DATE: 201806
